FAERS Safety Report 8432748-6 (Version None)
Quarter: 2012Q2

REPORT INFORMATION
  Report Type: 
  Country: None (occurrence: None)
  Receive Date: 20120323
  Receipt Date: 20110602
  Transmission Date: 20120825
  Serious: Yes (Hospitalization)
  Sender: FDA-Public Use
  Company Number: 163-21880-11060721

PATIENT
  Age: 79 Year
  Sex: Female
  Weight: 59 kg

DRUGS (1)
  1. REVLIMID [Suspect]
     Indication: PARAPROTEINAEMIA
     Dosage: 25 MG, DAILY FOR 21 DAYS, THEN 7 DAYS OFF, PO
     Route: 048
     Dates: start: 20101124

REACTIONS (2)
  - ANAEMIA [None]
  - PNEUMONIA [None]
